FAERS Safety Report 9746811 (Version 2)
Quarter: 2013Q4

REPORT INFORMATION
  Report Type: Spontaneous
  Country: US (occurrence: US)
  Receive Date: 20131211
  Receipt Date: 20131220
  Transmission Date: 20140711
  Serious: Yes (Hospitalization)
  Sender: FDA-Public Use
  Company Number: US-DYAX CORP.-2013DX000203

PATIENT
  Sex: Female

DRUGS (3)
  1. KALBITOR [Suspect]
     Indication: HEREDITARY ANGIOEDEMA
     Route: 058
     Dates: start: 20111220
  2. BERINERT [Concomitant]
     Indication: HEREDITARY ANGIOEDEMA
     Route: 065
  3. CINRYZE [Concomitant]
     Indication: HEREDITARY ANGIOEDEMA
     Route: 042

REACTIONS (2)
  - Device related infection [Not Recovered/Not Resolved]
  - Sinusitis [Not Recovered/Not Resolved]
